FAERS Safety Report 12230609 (Version 1)
Quarter: 2016Q2

REPORT INFORMATION
  Report Type: Spontaneous
  Country: NL (occurrence: NL)
  Receive Date: 20160401
  Receipt Date: 20160401
  Transmission Date: 20160815
  Serious: Yes (Hospitalization)
  Sender: FDA-Public Use
  Company Number: NL-TEVA-646755ACC

PATIENT
  Age: 69 Year
  Sex: Female
  Weight: 75 kg

DRUGS (7)
  1. PROPRANOLOL [Suspect]
     Active Substance: PROPRANOLOL\PROPRANOLOL HYDROCHLORIDE
     Indication: MIGRAINE
     Dosage: 40 MILLIGRAM DAILY; ONCE DAILY ONE PIECE
     Route: 048
     Dates: start: 20150806, end: 20160310
  2. LISINOPRIL TABLET  5MG [Concomitant]
     Dosage: 5 MILLIGRAM DAILY; ONCE DAILY ONE PIECE
     Route: 048
  3. XYLOMETAZOLINE NEUSDRUPPELS 0,5MG/ML [Concomitant]
     Dosage: DOSAGE NOT KNOWN
     Route: 045
     Dates: end: 20160111
  4. PROGYNOVA DRAGEE 1MG [Concomitant]
     Dosage: AS REQUIRED ONCE DAILY ONE
     Route: 048
     Dates: end: 20160208
  5. NARATRIPTAN TABLET OMHULD 2,5MG [Concomitant]
     Dosage: AS REQUIRED WHEN HAVING AN ATTACK
     Route: 048
  6. NITROFURANTOINE CAPSULE  100MG [Concomitant]
     Dosage: 200 MILLIGRAM DAILY; TWICE DAILY ONE -}FURABID OP 20-JAN-2016
     Route: 048
  7. KALCIPOS-D KAUWTABLET 500MG/800IE [Concomitant]
     Dosage: 1 DOSAGE FORMS DAILY; ONCE DAILY ONE PIECE
     Route: 048

REACTIONS (1)
  - Loss of consciousness [Recovered/Resolved]

NARRATIVE: CASE EVENT DATE: 20160110
